FAERS Safety Report 24257301 (Version 2)
Quarter: 2024Q3

REPORT INFORMATION
  Report Type: Spontaneous
  Country: US (occurrence: US)
  Receive Date: 20240828
  Receipt Date: 20240912
  Transmission Date: 20241017
  Serious: No
  Sender: Unknown Manufacturer
  Company Number: US-MTPC-MTDA2024-0017704

PATIENT
  Age: 61 Year
  Sex: Female

DRUGS (3)
  1. RADICAVA ORS [Suspect]
     Active Substance: EDARAVONE
     Indication: Amyotrophic lateral sclerosis
     Dosage: STANDARD DOSE - STARTER DOSE
     Route: 065
  2. RADICAVA ORS [Suspect]
     Active Substance: EDARAVONE
     Indication: Amyotrophic lateral sclerosis
     Dosage: STANDARD DOSE - STARTER DOSE
     Route: 065
  3. RILUZOLE [Concomitant]
     Active Substance: RILUZOLE
     Indication: Product used for unknown indication
     Dosage: 50 MILLIGRAM, BID
     Route: 048
     Dates: start: 20240627

REACTIONS (3)
  - Feeling abnormal [Recovering/Resolving]
  - Depressed mood [Recovering/Resolving]
  - Presyncope [Recovering/Resolving]

NARRATIVE: CASE EVENT DATE: 20240807
